FAERS Safety Report 6149546-9 (Version None)
Quarter: 2009Q2

REPORT INFORMATION
  Report Type: 
  Country: None (occurrence: None)
  Receive Date: 20090409
  Receipt Date: 20071121
  Transmission Date: 20091009
  Serious: Yes (Death, Hospitalization)
  Sender: FDA-Public Use
  Company Number: US-ASTRAZENECA-2006UW21612

PATIENT
  Age: 31335 Day
  Sex: Female
  Weight: 56.7 kg

DRUGS (19)
  1. SEROQUEL [Suspect]
     Indication: INSOMNIA
     Route: 048
     Dates: start: 20030101
  2. SEROQUEL [Suspect]
     Dosage: 100 MG
     Route: 048
     Dates: start: 20031125
  3. RISPERDAL [Suspect]
     Dates: start: 20040101
  4. TENORMIN [Concomitant]
  5. LOVENOX [Concomitant]
  6. ULTRAM [Concomitant]
  7. TYLENOL [Concomitant]
  8. NORVASC [Concomitant]
  9. MORPHINE [Concomitant]
  10. PROTONIX [Concomitant]
  11. ARICEPT [Concomitant]
  12. RESTORIL [Concomitant]
  13. MUCOMYST [Concomitant]
  14. ZITHROMAX [Concomitant]
  15. COLACE [Concomitant]
  16. NEXIUM [Concomitant]
  17. HYTRIN [Concomitant]
  18. NAMENDA [Concomitant]
  19. ROBITUSSIN [Concomitant]

REACTIONS (26)
  - CARDIAC FAILURE CONGESTIVE [None]
  - CARDIO-RESPIRATORY ARREST [None]
  - CORONARY ARTERY DISEASE [None]
  - DECUBITUS ULCER [None]
  - DELIRIUM [None]
  - DEMENTIA [None]
  - DEMENTIA ALZHEIMER'S TYPE [None]
  - HEPATIC FUNCTION ABNORMAL [None]
  - HIATUS HERNIA [None]
  - HIP FRACTURE [None]
  - HYPOKALAEMIA [None]
  - HYPOMAGNESAEMIA [None]
  - HYPOXIA [None]
  - LOBAR PNEUMONIA [None]
  - MALNUTRITION [None]
  - MENTAL STATUS CHANGES [None]
  - OEDEMA PERIPHERAL [None]
  - OSTEOARTHRITIS [None]
  - PANCREATITIS [None]
  - PNEUMONIA [None]
  - PNEUMONIA ASPIRATION [None]
  - SYNCOPE [None]
  - UNRESPONSIVE TO STIMULI [None]
  - UPPER RESPIRATORY TRACT INFECTION [None]
  - URINARY RETENTION [None]
  - URINARY TRACT INFECTION [None]
